FAERS Safety Report 19691803 (Version 1)
Quarter: 2021Q3

REPORT INFORMATION
  Report Type: Spontaneous
  Country: NL (occurrence: DE)
  Receive Date: 20210812
  Receipt Date: 20210812
  Transmission Date: 20211014
  Serious: Yes (Hospitalization)
  Sender: FDA-Public Use
  Company Number: DE-FRESENIUS KABI-FK202108274

PATIENT
  Age: 60 Year
  Sex: Female

DRUGS (9)
  1. RAMUCIRUMAB [Suspect]
     Active Substance: RAMUCIRUMAB
     Indication: PRODUCT USED FOR UNKNOWN INDICATION
     Dosage: SCHEDULED, SOLUTION FOR INJECTION/INFUSION
     Route: 042
  2. ONDANSETRON [Concomitant]
     Active Substance: ONDANSETRON
     Indication: PRODUCT USED FOR UNKNOWN INDICATION
     Dosage: ONDANSETRON ABZ 8MG ?8 MG, UP TO TWICE IF MCP IS NOT SUFFICIENT
     Route: 060
  3. PACLITAXEL (MANUFACTURER UNKNOWN) [Suspect]
     Active Substance: PACLITAXEL
     Indication: PRODUCT USED FOR UNKNOWN INDICATION
     Dosage: SCHEDULED, SOLUTION FOR INJECTION/INFUSION
     Route: 042
  4. ESOMEPRAZOLE. [Concomitant]
     Active Substance: ESOMEPRAZOLE MAGNESIUM
     Indication: PRODUCT USED FOR UNKNOWN INDICATION
     Dosage: 20 MG, 1?0?0?0, TABLETS
     Route: 048
  5. FENTANYL. [Concomitant]
     Active Substance: FENTANYL
     Indication: PRODUCT USED FOR UNKNOWN INDICATION
     Dosage: FENTANYL 0.1MG?ROTEXMEDICA?0.1 MG, UP TO 6 TIMES DAILY, MELTING TABLETS
     Route: 060
  6. GLYCOPYRRONIUM BROMIDE/INDACATEROL MALEATE [Concomitant]
     Active Substance: GLYCOPYRROLATE\INDACATEROL MALEATE
     Indication: PRODUCT USED FOR UNKNOWN INDICATION
     Dosage: ULTIBRO BREEZHALER 85MICROGRAMS / 43MICROGRAMS?1?0?0?0, METERED INHALER
     Route: 055
  7. FENTANYL. [Concomitant]
     Active Substance: FENTANYL
     Indication: PRODUCT USED FOR UNKNOWN INDICATION
     Dosage: FENTANYL?1A PHARMA 25MCG/H MATRIX PATCH?EVERY 3 DAYS CHANGE, TRANSDERMAL PATCH
     Route: 062
  8. METAMIZOLE MAGNESIUM [Concomitant]
     Active Substance: METAMIZOLE MAGNESIUM
     Indication: PRODUCT USED FOR UNKNOWN INDICATION
     Dosage: 30 GTT, 1?1?1?1, DROPS
     Route: 048
  9. METOCLOPRAMIDE HYDROCHLORIDE. [Concomitant]
     Active Substance: METOCLOPRAMIDE HYDROCHLORIDE
     Indication: NAUSEA
     Dosage: MCP?1A PHARMA 10MG?10 MG, UP TO 3 TIMES FOR NAUSEA, TABLETS
     Route: 048

REACTIONS (3)
  - Pain [Unknown]
  - Application site erythema [Unknown]
  - Condition aggravated [Unknown]
